FAERS Safety Report 7463788-1 (Version None)
Quarter: 2011Q2

REPORT INFORMATION
  Report Type: 
  Country: None (occurrence: None)
  Receive Date: 20110506
  Receipt Date: 20110426
  Transmission Date: 20111010
  Serious: Yes (Other)
  Sender: FDA-Public Use
  Company Number: PHHY2011FR36484

PATIENT
  Age: 80 Year
  Sex: Female

DRUGS (6)
  1. ZOCOR [Concomitant]
     Indication: HYPERCHOLESTEROLAEMIA
     Dosage: 20 MG, UNK
  2. LEVOTHYROX [Concomitant]
     Dosage: 100 MG, UNK
     Route: 048
  3. CO-TRIATEC [Concomitant]
     Dosage: 5/12.5 MG, UNK
     Route: 048
  4. PIASCLEDINE [Concomitant]
     Route: 048
  5. PLAVIX [Concomitant]
     Dosage: 75 MG, UNK
  6. GLEEVEC [Suspect]
     Indication: CHRONIC MYELOID LEUKAEMIA
     Dosage: 600 MG, QD

REACTIONS (1)
  - ARTERIAL DISORDER [None]
